FAERS Safety Report 12069428 (Version 1)
Quarter: 2016Q1

REPORT INFORMATION
  Report Type: Spontaneous
  Country: GB (occurrence: GB)
  Receive Date: 20160211
  Receipt Date: 20160211
  Transmission Date: 20160526
  Serious: Yes (Other)
  Sender: FDA-Public Use
  Company Number: GB-009507513-1602GBR002024

PATIENT
  Age: 89 Year
  Sex: Female
  Weight: 74 kg

DRUGS (12)
  1. IBUPROFEN. [Concomitant]
     Active Substance: IBUPROFEN
     Indication: PAIN
     Dates: start: 20141212, end: 20160122
  2. ALENDRONATE SODIUM. [Suspect]
     Active Substance: ALENDRONATE SODIUM
     Route: 048
     Dates: start: 20040316
  3. SIMVASTATIN. [Concomitant]
     Active Substance: SIMVASTATIN
     Dosage: IN THE EVENING
     Dates: start: 20030930
  4. VISCOTEARS [Concomitant]
     Active Substance: CARBOMER
     Dates: start: 20111205
  5. AMLODIPINE [Concomitant]
     Active Substance: AMLODIPINE BESYLATE
     Dates: start: 20160122
  6. NITROGLYCERIN. [Concomitant]
     Active Substance: NITROGLYCERIN
     Indication: CHEST PAIN
     Dosage: 1-2 AS REQUIRED FOR CHEST PAIN
     Dates: start: 20140619
  7. INDAPAMIDE. [Concomitant]
     Active Substance: INDAPAMIDE
     Dates: start: 20030218
  8. ASPIRIN. [Concomitant]
     Active Substance: ASPIRIN
     Dosage: DISSOLVED IN WATER AFTER ...
     Dates: start: 20090226
  9. OMEPRAZOLE. [Concomitant]
     Active Substance: OMEPRAZOLE
     Dates: start: 20141119
  10. ACETAMINOPHEN. [Concomitant]
     Active Substance: ACETAMINOPHEN
     Dosage: TAKE TWO TABLETS UP TO FOUR TIMES A DAY AS REQU...
     Dates: start: 20151110
  11. ADCAL (CALCIUM CARBONATE) [Concomitant]
     Active Substance: CALCIUM CARBONATE
     Indication: OSTEOPOROSIS PROPHYLAXIS
     Dosage: SUCK OR CHEW ONE TABLET DAILY TO PROTECT BONES
     Route: 048
     Dates: start: 20040507, end: 20160118
  12. ATENOLOL. [Concomitant]
     Active Substance: ATENOLOL
     Dates: start: 20030325

REACTIONS (2)
  - Loose tooth [Unknown]
  - Dysphagia [Recovered/Resolved]

NARRATIVE: CASE EVENT DATE: 20150628
